FAERS Safety Report 8976616 (Version 7)
Quarter: 2014Q2

REPORT INFORMATION
  Report Type: Report from Study
  Country: JP (occurrence: JP)
  Receive Date: 20121220
  Receipt Date: 20140423
  Transmission Date: 20141212
  Serious: Yes (Death, Life-Threatening)
  Sender: FDA-Public Use
  Company Number: JP-PFIZER INC-2012318619

PATIENT
  Age: 62 Year
  Sex: Male
  Weight: 68.3 kg

DRUGS (11)
  1. XALKORI [Suspect]
     Indication: NON-SMALL CELL LUNG CANCER
     Dosage: 250 MG, 2X/DAY
     Route: 048
     Dates: start: 20121112, end: 20121211
  2. TRAVELMIN [Concomitant]
     Dosage: UNK
     Route: 048
     Dates: start: 20121025, end: 20121215
  3. PRIMPERAN [Concomitant]
     Dosage: 5 MG, 3X/DAY
     Route: 048
     Dates: start: 20121114, end: 20121215
  4. MAGMITT [Concomitant]
     Dosage: 500 MG, 3X/DAY
     Route: 048
     Dates: start: 20121118, end: 20121215
  5. PURSENNID [Concomitant]
     Dosage: 12 MG, 2X/DAY
     Route: 048
     Dates: start: 20121025, end: 20121215
  6. NAUZELIN [Concomitant]
     Dosage: 10 MG, 3X/DAY
     Route: 048
     Dates: start: 20121204, end: 20121215
  7. NAIXAN [Concomitant]
     Dosage: 100 MG, 2X/DAY
     Route: 048
     Dates: start: 20121111, end: 20121215
  8. OXINORM (OXYCODONE HYDROCHLORIDE) [Concomitant]
     Dosage: 2.5 MG, 1X/DAY
     Route: 048
     Dates: start: 20121013, end: 20121215
  9. GRANISETRON [Concomitant]
     Dosage: 2 MG, 1X/DAY
     Route: 048
     Dates: start: 20121116, end: 20121217
  10. FENTANYL CITRATE [Concomitant]
     Dosage: 1 MG, 1X/DAY
     Route: 003
     Dates: start: 20121017, end: 20121227
  11. STRONG NEO-MINOPHAGEN C [Concomitant]
     Dosage: 20 ML, 1X/DAY
     Dates: start: 20121126, end: 20121217

REACTIONS (3)
  - Disease progression [Fatal]
  - Non-small cell lung cancer [Fatal]
  - Interstitial lung disease [Recovering/Resolving]
